FAERS Safety Report 15710569 (Version 2)
Quarter: 2018Q4

REPORT INFORMATION
  Report Type: Spontaneous
  Country: IT (occurrence: IT)
  Receive Date: 20181211
  Receipt Date: 20181213
  Transmission Date: 20190205
  Serious: Yes (Other)
  Sender: FDA-Public Use
  Company Number: IT-BAYER-2018-231090

PATIENT

DRUGS (2)
  1. INTERFERON BETA - 1B [Suspect]
     Active Substance: INTERFERON BETA-1B
     Indication: EXPOSURE VIA FATHER
     Dosage: UNK
     Route: 050
  2. GLATIRAMER ACETATE. [Suspect]
     Active Substance: GLATIRAMER ACETATE
     Indication: EXPOSURE VIA FATHER
     Dosage: THE SUSPECT MEDICATION WAS TAKEN BY THE FATHER
     Route: 050

REACTIONS (5)
  - Developmental hip dysplasia [Unknown]
  - Jaundice [Unknown]
  - Haemangioma of skin [Unknown]
  - Oesophageal atresia [Unknown]
  - Paternal exposure before pregnancy [Unknown]
